FAERS Safety Report 10656425 (Version 1)
Quarter: 2014Q4

REPORT INFORMATION
  Report Type: Spontaneous
  Country: US (occurrence: US)
  Receive Date: 20141216
  Receipt Date: 20141216
  Transmission Date: 20150529
  Serious: No
  Sender: FDA-Public Use
  Company Number: US-GLAXOSMITHKLINE-US2014GSK027476

PATIENT
  Age: 84 Year
  Sex: Male

DRUGS (5)
  1. ADVAIR DISKUS [Suspect]
     Active Substance: FLUTICASONE PROPIONATE\SALMETEROL XINAFOATE
     Indication: WHEEZING
  2. ADVAIR DISKUS [Suspect]
     Active Substance: FLUTICASONE PROPIONATE\SALMETEROL XINAFOATE
     Indication: CHRONIC OBSTRUCTIVE PULMONARY DISEASE
  3. ADVAIR DISKUS [Suspect]
     Active Substance: FLUTICASONE PROPIONATE\SALMETEROL XINAFOATE
     Indication: ASTHMA
     Dosage: 1 PUFF(S), BID
     Route: 055
     Dates: start: 201408, end: 20141027
  4. MULTIPLE DRUGS [Concomitant]
     Active Substance: UNSPECIFIED INGREDIENT
  5. ADVAIR DISKUS [Suspect]
     Active Substance: FLUTICASONE PROPIONATE\SALMETEROL XINAFOATE
     Indication: PULMONARY CONGESTION

REACTIONS (5)
  - Cough [Recovered/Resolved]
  - Dry mouth [Recovering/Resolving]
  - Oropharyngeal pain [Recovered/Resolved]
  - Dysphonia [Recovering/Resolving]
  - Haemoptysis [Recovered/Resolved]

NARRATIVE: CASE EVENT DATE: 201411
